FAERS Safety Report 16728452 (Version 1)
Quarter: 2019Q3

REPORT INFORMATION
  Report Type: Spontaneous
  Country: DE (occurrence: DE)
  Receive Date: 20190822
  Receipt Date: 20190822
  Transmission Date: 20191005
  Serious: Yes (Hospitalization, Other)
  Sender: FDA-Public Use
  Company Number: DE-ACTELION-A-CH2019-194601

PATIENT
  Age: 35 Year
  Sex: Female
  Weight: 83 kg

DRUGS (5)
  1. APIXABAN [Concomitant]
     Active Substance: APIXABAN
     Indication: HYPERCOAGULATION
     Dosage: DAILY DOSE: 10 MG MILLGRAM(S) EVERY DAYS 2 SEPARATED DOSES
     Route: 048
     Dates: start: 201711
  2. OPSUMIT [Suspect]
     Active Substance: MACITENTAN
     Indication: PULMONARY HYPERTENSION
     Dosage: DAILY DOSE: 10 MG MILLGRAM(S) EVERY DAYS
     Route: 048
     Dates: start: 201901, end: 201905
  3. PREDNISOLON [Concomitant]
     Active Substance: PREDNISOLONE
     Indication: THROMBOCYTOPENIA
     Dosage: DAILY DOSE: 15 MG MILLGRAM(S) EVERY DAYS
     Route: 048
     Dates: start: 2018
  4. RIOCIGUAT. [Concomitant]
     Active Substance: RIOCIGUAT
     Indication: PULMONARY HYPERTENSION
     Dosage: DAILY DOSE: 5 MG MILLGRAM(S) EVERY DAYS 2 SEPARATED DOSES
     Route: 048
     Dates: start: 201901
  5. ELTROMBOPAG [Concomitant]
     Active Substance: ELTROMBOPAG
     Indication: THROMBOCYTOPENIA
     Dosage: DAILY DOSE: 75 MG MILLGRAM(S) EVERY DAYS
     Route: 048
     Dates: start: 201808

REACTIONS (7)
  - Hypoglycaemia [Unknown]
  - Blood bilirubin increased [Unknown]
  - Hepatic enzyme increased [Unknown]
  - Metabolic disorder [Unknown]
  - Gamma-glutamyltransferase increased [Unknown]
  - Alanine aminotransferase increased [Unknown]
  - Blood alkaline phosphatase increased [Unknown]

NARRATIVE: CASE EVENT DATE: 20190521
